FAERS Safety Report 8813387 (Version 1)
Quarter: 2012Q4

REPORT INFORMATION
  Report Type: 
  Country: US (occurrence: US)
  Receive Date: 20120927
  Receipt Date: 20120927
  Transmission Date: 20130627
  Serious: No
  Sender: FDA-Public Use
  Company Number: US-AMGEN-USASP2012050180

PATIENT
  Age: 85 Year
  Sex: Female
  Weight: 56.69 kg

DRUGS (11)
  1. PROLIA [Suspect]
     Indication: OSTEOPOROSIS POSTMENOPAUSAL
     Dosage: 60 mg, one time dose
     Route: 058
     Dates: start: 20120411
  2. ASPIRIN [Concomitant]
     Dosage: 81 mg, qd
     Route: 048
  3. GABAPENTIN [Concomitant]
     Dosage: UNK UNK, tid
     Route: 048
  4. TRIAMTERENE/HCTZ [Concomitant]
     Dosage: UNK UNK, qd
     Route: 048
  5. VERAPAMIL [Concomitant]
     Dosage: 240 mg, qd
     Route: 048
  6. VITAMIN C                          /00008001/ [Concomitant]
  7. VITAMIN E                          /00110501/ [Concomitant]
  8. MULTIVITAMIN                       /00097801/ [Concomitant]
  9. CALCIUM [Concomitant]
  10. VITAMIN D /00107901/ [Concomitant]
  11. METHIMAZOLE [Concomitant]
     Dosage: UNK

REACTIONS (1)
  - Herpes zoster [Recovering/Resolving]
